FAERS Safety Report 5256367-8 (Version None)
Quarter: 2007Q1

REPORT INFORMATION
  Report Type: 
  Country: None (occurrence: None)
  Receive Date: 20061204
  Receipt Date: 20060912
  Transmission Date: 20070707
  Serious: No
  Sender: FDA-Public Use
  Company Number: 2006-BP-09502BP

PATIENT
  Age: 81 Year
  Sex: Female

DRUGS (15)
  1. SPIRIVA [Suspect]
     Indication: CHRONIC OBSTRUCTIVE PULMONARY DISEASE
     Dosage: 18 MCG (18 MCG, 1 IN 1 D), IH
     Route: 055
     Dates: start: 20060815
  2. SPIRIVA [Suspect]
  3. OXYGEN (OXYGEN) [Concomitant]
  4. PROTONIX [Concomitant]
  5. CLARATIN (LORATADINE) [Concomitant]
  6. ENALAPRIL MALEATE [Concomitant]
  7. MAGNESIUM OXIDE (MAGNESIUM OXIDE) [Concomitant]
  8. CHILD ASPIRIN (BUTALBITAL W/ASPIRIN, CAFFEINE) [Concomitant]
  9. PLAVIX [Concomitant]
  10. CALCIUM (CALCIUM) [Concomitant]
  11. DILTIAZEM [Concomitant]
  12. DUO NEB (ALL OTHER THERAPEUTIC PRODUCTS) [Concomitant]
  13. POTASSIUM CHLORIDE [Concomitant]
  14. FORTAZ [Concomitant]
  15. AZMACORT INHALER (TRIAMCINOLONE ACETONIDE) [Concomitant]

REACTIONS (1)
  - DRUG INEFFECTIVE [None]
